FAERS Safety Report 9523202 (Version 2)
Quarter: 2013Q4

REPORT INFORMATION
  Report Type: Spontaneous
  Country: IT (occurrence: IT)
  Receive Date: 20130913
  Receipt Date: 20131104
  Transmission Date: 20140711
  Serious: Yes (Hospitalization)
  Sender: FDA-Public Use
  Company Number: IT-GLAXOSMITHKLINE-B0922365A

PATIENT
  Age: 72 Year
  Sex: Female

DRUGS (7)
  1. RYTHMOL SR [Suspect]
     Indication: SUPRAVENTRICULAR TACHYCARDIA
     Dosage: 650MG PER DAY
     Route: 048
     Dates: start: 20130821, end: 20130823
  2. RAMIPRIL [Concomitant]
     Route: 048
  3. TORVAST [Concomitant]
  4. INDERAL [Concomitant]
     Indication: SUPRAVENTRICULAR TACHYCARDIA
     Dosage: 160MG PER DAY
     Route: 048
     Dates: start: 20110101, end: 20130821
  5. METOCAL [Concomitant]
  6. DIFMETRE [Concomitant]
  7. TAVOR [Concomitant]

REACTIONS (2)
  - Asthenia [Recovering/Resolving]
  - Fatigue [Unknown]
